FAERS Safety Report 14848315 (Version 2)
Quarter: 2018Q3

REPORT INFORMATION
  Report Type: Spontaneous
  Country: US (occurrence: US)
  Receive Date: 20180504
  Receipt Date: 20180808
  Transmission Date: 20181010
  Serious: Yes (Hospitalization, Other)
  Sender: FDA-Public Use
  Company Number: US-JAZZ-2018-US-007125

PATIENT
  Age: 53 Year
  Sex: Female

DRUGS (1)
  1. XYREM [Suspect]
     Active Substance: SODIUM OXYBATE
     Indication: NARCOLEPSY
     Route: 048

REACTIONS (13)
  - Respiratory depression [Recovered/Resolved]
  - Irritability [Recovered/Resolved]
  - Lethargy [Recovered/Resolved]
  - Blood creatine phosphokinase increased [Recovered/Resolved]
  - Hypertension [Recovered/Resolved]
  - Overdose [Unknown]
  - Agitation [Recovered/Resolved]
  - Suicide attempt [Unknown]
  - Electrolyte imbalance [Recovered/Resolved]
  - Hypothermia [Recovered/Resolved]
  - Loss of consciousness [Recovered/Resolved]
  - Somnolence [Recovered/Resolved]
  - Mental status changes [Unknown]

NARRATIVE: CASE EVENT DATE: 201804
